FAERS Safety Report 8516162-0 (Version None)
Quarter: 2012Q3

REPORT INFORMATION
  Report Type: 
  Country: None (occurrence: None)
  Receive Date: 20120717
  Receipt Date: 20120705
  Transmission Date: 20120928
  Serious: Yes (Death)
  Sender: FDA-Public Use
  Company Number: GB-FRI-1000030424

PATIENT
  Age: 7 Decade
  Sex: Female

DRUGS (4)
  1. DIAZEPAM [Concomitant]
  2. TRAZODONE HYDROCHLORIDE [Concomitant]
  3. MEMANTINE HCL [Suspect]
     Indication: DEMENTIA
     Dosage: 20 MG
     Route: 048
  4. RISPERIDONE [Concomitant]

REACTIONS (3)
  - OFF LABEL USE [None]
  - STREPTOCOCCAL INFECTION [None]
  - PNEUMONIA [None]
